FAERS Safety Report 25186498 (Version 3)
Quarter: 2025Q3

REPORT INFORMATION
  Report Type: Report from Study
  Country: US (occurrence: US)
  Receive Date: 20250411
  Receipt Date: 20250813
  Transmission Date: 20251020
  Serious: Yes (Hospitalization)
  Sender: ABBVIE
  Company Number: US-ABBVIE-6218427

PATIENT
  Sex: Male
  Weight: 2 kg

DRUGS (2)
  1. BOTOX [Suspect]
     Active Substance: ONABOTULINUMTOXINA
     Indication: Maternal exposure timing unspecified
     Route: 064
  2. QULIPTA [Suspect]
     Active Substance: ATOGEPANT
     Indication: Maternal exposure timing unspecified
     Route: 064

REACTIONS (2)
  - Premature baby [Unknown]
  - Foetal exposure during pregnancy [Unknown]
